FAERS Safety Report 10262165 (Version 1)
Quarter: 2014Q2

REPORT INFORMATION
  Report Type: Spontaneous
  Country: US (occurrence: US)
  Receive Date: 20140626
  Receipt Date: 20140626
  Transmission Date: 20141212
  Serious: Yes (Hospitalization)
  Sender: FDA-Public Use
  Company Number: US-GLAXOSMITHKLINE-A1078613A

PATIENT
  Age: 67 Year
  Sex: Female

DRUGS (3)
  1. MEKINIST [Suspect]
     Indication: METASTATIC MALIGNANT MELANOMA
     Dosage: 2MG UNKNOWN
     Route: 048
     Dates: start: 20140128
  2. TAFINLAR [Suspect]
     Indication: METASTATIC MALIGNANT MELANOMA
     Dosage: 75MG UNKNOWN
     Route: 048
     Dates: start: 20140128
  3. IPILIMUMAB [Concomitant]

REACTIONS (4)
  - Supraventricular tachycardia [Unknown]
  - Urinary tract disorder [Unknown]
  - Back pain [Unknown]
  - Urinary tract infection [Unknown]
